FAERS Safety Report 7297849-7 (Version None)
Quarter: 2011Q1

REPORT INFORMATION
  Report Type: 
  Country: None (occurrence: None)
  Receive Date: 20110217
  Receipt Date: 20101109
  Transmission Date: 20110831
  Serious: No
  Sender: FDA-Public Use
  Company Number: US-KINGPHARMUSA00001-K201001376

PATIENT
  Sex: Female

DRUGS (1)
  1. FLECTOR [Suspect]
     Indication: NECK PAIN
     Dosage: UNK PATCH, SINGLE
     Route: 061
     Dates: start: 20101108

REACTIONS (1)
  - APPLICATION SITE PRURITUS [None]
